FAERS Safety Report 11451940 (Version 1)
Quarter: 2015Q3

REPORT INFORMATION
  Report Type: Spontaneous
  Country: US (occurrence: US)
  Receive Date: 20150903
  Receipt Date: 20150903
  Transmission Date: 20151125
  Serious: Yes (Other)
  Sender: FDA-Public Use
  Company Number: US-ENDO PHARMACEUTICALS INC.-2015-002622

PATIENT
  Sex: Male

DRUGS (1)
  1. TESTOPEL [Suspect]
     Active Substance: TESTOSTERONE
     Indication: BLOOD TESTOSTERONE DECREASED
     Route: 065

REACTIONS (1)
  - Thrombosis [Unknown]
